FAERS Safety Report 16641506 (Version 1)
Quarter: 2019Q3

REPORT INFORMATION
  Report Type: Spontaneous
  Country: US (occurrence: US)
  Receive Date: 20190613
  Receipt Date: 20190613
  Transmission Date: 20191004
  Serious: Yes (Hospitalization)
  Sender: FDA-Public Use
  Company Number: None

PATIENT
  Age: 80 Year
  Sex: Female
  Weight: 68.1 kg

DRUGS (2)
  1. TAXOL [Suspect]
     Active Substance: PACLITAXEL
     Dates: end: 20190311
  2. CARBOPLATIN. [Suspect]
     Active Substance: CARBOPLATIN
     Dates: end: 20190311

REACTIONS (7)
  - Asthenia [None]
  - Disease progression [None]
  - Nausea [None]
  - Nodule [None]
  - Abdominal pain [None]
  - Confusional state [None]
  - Metastasis [None]

NARRATIVE: CASE EVENT DATE: 20190605
